FAERS Safety Report 9180720 (Version 3)
Quarter: 2013Q2

REPORT INFORMATION
  Report Type: Spontaneous
  Country: FR (occurrence: None)
  Receive Date: 20130320
  Receipt Date: 20130509
  Transmission Date: 20140414
  Serious: Yes (Hospitalization)
  Sender: FDA-Public Use
  Company Number: ACO_33494_2012

PATIENT
  Age: 59 Year
  Sex: Male

DRUGS (7)
  1. FAMPRIDINE-SR (FAMPRIDINE) TABLET [Suspect]
     Indication: MULTIPLE SCLEROSIS
     Route: 048
     Dates: start: 20120704, end: 20120718
  2. ALLOPURINOL [Concomitant]
  3. COVERAM (AMIODIPINE BESILATE, PERINDOPRIL ARGININE) [Concomitant]
  4. LODOZ (BISOPROLOL FUMARATE, HYDROCHLOROTHIAZIDE) [Concomitant]
  5. LIORESAL (BACLOFEN) [Concomitant]
  6. LYRICA (PREGABALIN) [Concomitant]
  7. BIPROFENID (KETOPROFEN) [Concomitant]

REACTIONS (16)
  - Oedema [None]
  - Multiple sclerosis relapse [None]
  - No therapeutic response [None]
  - Urinary retention [None]
  - Dysuria [None]
  - Extrasystoles [None]
  - Hepatojugular reflux [None]
  - Breath sounds abnormal [None]
  - Fluid retention [None]
  - Hyponatraemia [None]
  - Hypoproteinaemia [None]
  - Hypoalbuminaemia [None]
  - Hypogammaglobulinaemia [None]
  - Anaemia [None]
  - Urinary tract infection staphylococcal [None]
  - Paraparesis [None]
